FAERS Safety Report 17148947 (Version 1)
Quarter: 2019Q4

REPORT INFORMATION
  Report Type: Spontaneous
  Country: ZA (occurrence: ZA)
  Receive Date: 20191213
  Receipt Date: 20191213
  Transmission Date: 20200122
  Serious: Yes (Life-Threatening, Hospitalization, Other)
  Sender: FDA-Public Use
  Company Number: ZA-CIPLA LTD.-2019ZA08125

PATIENT

DRUGS (2)
  1. MEZAVANT [Concomitant]
     Active Substance: MESALAMINE
     Indication: CROHN^S DISEASE
     Dosage: 4 DOSAGE FORM, DAILY (TAKING FOR THE PAST FEW YEARS)
     Route: 048
  2. WARFARIN [Suspect]
     Active Substance: WARFARIN
     Indication: ANTICOAGULANT THERAPY
     Dosage: UNK, (1X4 DAYS, 1/2X3 DAYS) PER WEEK
     Route: 048
     Dates: start: 20190902, end: 20190908

REACTIONS (3)
  - Product substitution issue [Unknown]
  - Anticoagulation drug level below therapeutic [Recovered/Resolved]
  - Acute myocardial infarction [Recovered/Resolved]

NARRATIVE: CASE EVENT DATE: 20190908
